FAERS Safety Report 7392834-9 (Version None)
Quarter: 2011Q2

REPORT INFORMATION
  Report Type: 
  Country: None (occurrence: None)
  Receive Date: 20110404
  Receipt Date: 20110323
  Transmission Date: 20111010
  Serious: Yes (Hospitalization)
  Sender: FDA-Public Use
  Company Number: JP-PFIZER INC-2011059941

PATIENT
  Age: 57 Year
  Sex: Female

DRUGS (3)
  1. ARTZ [Concomitant]
     Indication: OSTEOARTHRITIS
     Dosage: UNK
     Dates: start: 20100219, end: 20101118
  2. LAFUTIDINE [Concomitant]
     Indication: OSTEOARTHRITIS
     Dosage: UNK
     Dates: end: 20101211
  3. CELECOX [Suspect]
     Indication: OSTEOARTHRITIS
     Dosage: 100 MG, 2X/DAY
     Route: 048
     Dates: start: 20100619, end: 20101211

REACTIONS (1)
  - ASTHMA [None]
